FAERS Safety Report 15710314 (Version 2)
Quarter: 2020Q1

REPORT INFORMATION
  Report Type: Spontaneous
  Country: US (occurrence: US)
  Receive Date: 20181211
  Receipt Date: 20200102
  Transmission Date: 20200409
  Serious: Yes (Death, Hospitalization, Other)
  Sender: FDA-Public Use
  Company Number: US-BAYER-2015-462174

PATIENT
  Age: 86 Year
  Sex: Female

DRUGS (18)
  1. XARELTO [Suspect]
     Active Substance: RIVAROXABAN
     Dosage: 15 MG, QD
     Route: 048
     Dates: start: 20150109, end: 20150115
  2. REMERON [Concomitant]
     Active Substance: MIRTAZAPINE
     Dosage: 30 MG, QD
     Route: 048
  3. ROCEPHIN [Concomitant]
     Active Substance: CEFTRIAXONE SODIUM
     Dosage: UNK
     Route: 042
  4. DONEPEZIL. [Concomitant]
     Active Substance: DONEPEZIL
     Dosage: 10 MG, QD
     Route: 065
  5. LISINOPRIL. [Concomitant]
     Active Substance: LISINOPRIL
     Dosage: 10 MG, QD
     Route: 065
  6. DEPAKOTE [Concomitant]
     Active Substance: DIVALPROEX SODIUM
     Dosage: 250 MG, BID
     Route: 048
  7. SODIUM CHLORIDE. [Concomitant]
     Active Substance: SODIUM CHLORIDE
     Dosage: UNK
     Route: 065
  8. CHOLECALCIFEROL [Concomitant]
     Active Substance: CHOLECALCIFEROL
     Dosage: 1000 IU, QD
     Route: 065
  9. IMDUR [Concomitant]
     Active Substance: ISOSORBIDE MONONITRATE
     Dosage: 30 MG, QD
     Route: 048
  10. ASPIRIN (CARDIO) [Suspect]
     Active Substance: ASPIRIN
     Indication: PRODUCT USED FOR UNKNOWN INDICATION
     Dosage: 81 MG, QD
  11. LABETALOL [Concomitant]
     Active Substance: LABETALOL\LABETALOL HYDROCHLORIDE
     Dosage: UNK
     Route: 065
  12. VASOTEC [Concomitant]
     Active Substance: ENALAPRIL MALEATE
     Dosage: UNK
     Route: 065
  13. HYDROCHLOROTHIAZIDE. [Concomitant]
     Active Substance: HYDROCHLOROTHIAZIDE
     Dosage: 12.5 MG, QD
     Route: 048
  14. LOPRESSOR [Concomitant]
     Active Substance: METOPROLOL TARTRATE
     Dosage: 25 MG, BID
     Route: 048
  15. XARELTO [Suspect]
     Active Substance: RIVAROXABAN
     Indication: DEEP VEIN THROMBOSIS
     Dosage: UNK UNK, QD
     Route: 048
     Dates: start: 20140922
  16. NORVASC [Concomitant]
     Active Substance: AMLODIPINE BESYLATE
     Dosage: 10 MG, QD
     Route: 065
  17. FERROUS SULFATE. [Concomitant]
     Active Substance: FERROUS SULFATE
     Dosage: 325 MG, TID
     Route: 065
  18. NAMENDA [Concomitant]
     Active Substance: MEMANTINE HYDROCHLORIDE
     Dosage: 28 MG, QD
     Route: 065

REACTIONS (4)
  - Microangiopathy [Unknown]
  - Sepsis [Fatal]
  - Haemorrhagic stroke [Unknown]
  - Perforation [Unknown]

NARRATIVE: CASE EVENT DATE: 201501
